FAERS Safety Report 7915952-2 (Version None)
Quarter: 2011Q4

REPORT INFORMATION
  Report Type: 
  Country: None (occurrence: None)
  Receive Date: 20111115
  Receipt Date: 20111109
  Transmission Date: 20120403
  Serious: Yes (Other)
  Sender: FDA-Public Use
  Company Number: JP-MERCK-1111USA01670

PATIENT
  Age: 86 Year
  Sex: Male

DRUGS (10)
  1. METHYCOBAL [Concomitant]
     Route: 065
  2. EMEND [Suspect]
     Indication: PROPHYLAXIS OF NAUSEA AND VOMITING
     Route: 048
     Dates: start: 20111024, end: 20111024
  3. FLUOROURACIL [Concomitant]
     Route: 065
  4. MUCOSTA [Concomitant]
     Route: 065
  5. ADALAT [Concomitant]
     Route: 065
  6. EMEND [Suspect]
     Route: 048
     Dates: start: 20111025, end: 20111026
  7. GRANISETRON HYDROCHLORIDE [Concomitant]
     Route: 065
  8. LACTEC [Concomitant]
     Route: 065
  9. CISPLATIN [Concomitant]
     Route: 065
  10. PRIMPERAN TAB [Concomitant]
     Route: 065

REACTIONS (2)
  - HICCUPS [None]
  - URINE OUTPUT DECREASED [None]
